FAERS Safety Report 25405274 (Version 3)
Quarter: 2025Q2

REPORT INFORMATION
  Report Type: Spontaneous
  Country: MX (occurrence: MX)
  Receive Date: 20250606
  Receipt Date: 20250617
  Transmission Date: 20250717
  Serious: Yes (Hospitalization)
  Sender: ROCHE
  Company Number: MX-ROCHE-10000303981

PATIENT
  Age: 52 Year
  Sex: Female
  Weight: 103 kg

DRUGS (2)
  1. HEMLIBRA [Suspect]
     Active Substance: EMICIZUMAB-KXWH
     Indication: Acquired haemophilia
     Dosage: LOADING DOSE
     Route: 058
     Dates: start: 20250529
  2. HEMLIBRA [Suspect]
     Active Substance: EMICIZUMAB-KXWH
     Route: 058
     Dates: start: 20250605, end: 20250605

REACTIONS (3)
  - Haemorrhage [Unknown]
  - Off label use [Unknown]
  - Off label use [Unknown]
